FAERS Safety Report 4683931-7 (Version None)
Quarter: 2005Q2

REPORT INFORMATION
  Report Type: 
  Country: None (occurrence: None)
  Receive Date: 20050607
  Receipt Date: 20050310
  Transmission Date: 20051028
  Serious: Yes (Death, Hospitalization)
  Sender: FDA-Public Use
  Company Number: US-MERCK-0503USA02227

PATIENT
  Age: 83 Year
  Sex: Male
  Weight: 57 kg

DRUGS (7)
  1. VIOXX [Suspect]
     Indication: RHEUMATOID ARTHRITIS
     Route: 048
     Dates: start: 20040101, end: 20040130
  2. TRIAZOLAM [Concomitant]
     Indication: SLEEP DISORDER
     Route: 065
     Dates: end: 20040229
  3. ALEVE [Concomitant]
     Indication: PAIN
     Route: 065
  4. IBUPROFEN [Concomitant]
     Indication: RHEUMATOID ARTHRITIS
     Route: 065
  5. ASPIRIN [Concomitant]
     Indication: PYREXIA
     Route: 065
  6. ASPIRIN [Concomitant]
     Indication: RHEUMATOID ARTHRITIS
     Route: 065
  7. TYLENOL (CAPLET) [Concomitant]
     Indication: PAIN
     Route: 065

REACTIONS (25)
  - ACUTE MYOCARDIAL INFARCTION [None]
  - ANAEMIA [None]
  - ANXIETY [None]
  - ASPIRATION [None]
  - AZOTAEMIA [None]
  - BUNDLE BRANCH BLOCK LEFT [None]
  - CACHEXIA [None]
  - CANDIDIASIS [None]
  - CARDIAC FAILURE CONGESTIVE [None]
  - CARDIOMYOPATHY [None]
  - DEATH [None]
  - DEHYDRATION [None]
  - DIABETES MELLITUS [None]
  - DYSPHAGIA [None]
  - HYPOXIA [None]
  - NEPHROLITHIASIS [None]
  - PAIN [None]
  - PANCYTOPENIA [None]
  - PNEUMONIA [None]
  - PULMONARY FIBROSIS [None]
  - RENAL FAILURE [None]
  - RENAL FAILURE ACUTE [None]
  - RESPIRATORY FAILURE [None]
  - RHEUMATOID LUNG [None]
  - URINARY TRACT INFECTION [None]
